FAERS Safety Report 4360080-9 (Version None)
Quarter: 2004Q2

REPORT INFORMATION
  Report Type: 
  Country: None (occurrence: None)
  Receive Date: 20040519
  Receipt Date: 20040507
  Transmission Date: 20050107
  Serious: Yes (Hospitalization)
  Sender: FDA-Public Use
  Company Number: FR-JNJFOC-20040403936

PATIENT
  Sex: Male

DRUGS (12)
  1. RISPERDAL [Suspect]
     Route: 049
  2. TENORDATE [Concomitant]
     Route: 065
  3. TENORDATE [Concomitant]
     Indication: DRUG USE FOR UNKNOWN INDICATION
     Dosage: 2 TABLETS PER DAY
     Route: 065
  4. LASILIX 40 [Concomitant]
     Indication: DRUG USE FOR UNKNOWN INDICATION
     Route: 065
  5. MODOPAR LP [Concomitant]
     Route: 065
  6. MODOPAR LP [Concomitant]
     Indication: DRUG USE FOR UNKNOWN INDICATION
     Route: 065
  7. DEPRENYL 5 [Concomitant]
     Indication: DRUG USE FOR UNKNOWN INDICATION
     Route: 065
  8. TRIVASTAL LP [Concomitant]
     Indication: DRUG USE FOR UNKNOWN INDICATION
     Route: 065
  9. NOOTROPYL [Concomitant]
     Indication: DRUG USE FOR UNKNOWN INDICATION
     Route: 065
  10. FLUVOXAMINE MALEATE [Concomitant]
     Indication: DRUG USE FOR UNKNOWN INDICATION
     Route: 065
  11. RIVOTRIL [Concomitant]
     Indication: DRUG USE FOR UNKNOWN INDICATION
     Dosage: 20 DROPS IN THE EVENING
     Route: 065
  12. CHONDROSULF [Concomitant]

REACTIONS (2)
  - MEDICATION ERROR [None]
  - SOMNOLENCE [None]
